FAERS Safety Report 24626095 (Version 1)
Quarter: 2024Q4

REPORT INFORMATION
  Report Type: Spontaneous
  Country: US (occurrence: US)
  Receive Date: 20241115
  Receipt Date: 20241115
  Transmission Date: 20250115
  Serious: Yes (Other)
  Sender: CSL BEHRING
  Company Number: US-BEH-2024183048

PATIENT
  Sex: Female

DRUGS (1)
  1. HIZENTRA [Suspect]
     Active Substance: HUMAN IMMUNOGLOBULIN G
     Indication: Immunodeficiency common variable
     Dosage: 50 ML, QW
     Route: 058
     Dates: start: 202407

REACTIONS (13)
  - Oropharyngeal blistering [Not Recovered/Not Resolved]
  - COVID-19 [Not Recovered/Not Resolved]
  - Dyspnoea [Not Recovered/Not Resolved]
  - Pyrexia [Not Recovered/Not Resolved]
  - Urinary tract infection [Unknown]
  - Liver function test decreased [Unknown]
  - Blood creatinine increased [Unknown]
  - Headache [Not Recovered/Not Resolved]
  - Nausea [Not Recovered/Not Resolved]
  - Pruritus [Not Recovered/Not Resolved]
  - Petechiae [Not Recovered/Not Resolved]
  - Arthralgia [Recovering/Resolving]
  - Constipation [Recovered/Resolved]

NARRATIVE: CASE EVENT DATE: 20240101
